FAERS Safety Report 15098881 (Version 1)
Quarter: 2018Q3

REPORT INFORMATION
  Report Type: Spontaneous
  Country: US (occurrence: US)
  Receive Date: 20180702
  Receipt Date: 20180702
  Transmission Date: 20181010
  Serious: Yes (Disabling, Other)
  Sender: FDA-Public Use
  Company Number: US-REGENERON PHARMACEUTICALS, INC.-2017-30195

PATIENT

DRUGS (2)
  1. EYLEA [Suspect]
     Active Substance: AFLIBERCEPT
     Dosage: 2 MG, EVERY 4 WEEKS, ALTERNATING EVERY 2 WEEKS, OU
     Route: 031
     Dates: start: 2017, end: 2017
  2. EYLEA [Suspect]
     Active Substance: AFLIBERCEPT
     Indication: NEOVASCULAR AGE-RELATED MACULAR DEGENERATION
     Dosage: 2 MG, EVERY 4 WEEKS, ALTERNATING EVERY 2 WEEKS, OU
     Route: 031
     Dates: start: 20170508

REACTIONS (5)
  - Endophthalmitis [Recovered/Resolved]
  - Hypotony of eye [Recovered/Resolved]
  - Vitreous floaters [Unknown]
  - Blindness unilateral [Unknown]
  - Infective uveitis [Not Recovered/Not Resolved]

NARRATIVE: CASE EVENT DATE: 20180218
